FAERS Safety Report 8487004-7 (Version None)
Quarter: 2012Q3

REPORT INFORMATION
  Report Type: 
  Country: None (occurrence: None)
  Receive Date: 20120704
  Receipt Date: 20120629
  Transmission Date: 20120928
  Serious: Yes (Other)
  Sender: FDA-Public Use
  Company Number: PHHY2012AR056677

PATIENT

DRUGS (2)
  1. EXELON [Suspect]
     Dosage: 1 DF QD
     Route: 062
  2. EXELON [Suspect]
     Dosage: 2 DF, QD (5CM)
     Route: 062

REACTIONS (4)
  - HYPERSENSITIVITY [None]
  - URTICARIA [None]
  - BLISTER [None]
  - WRONG TECHNIQUE IN DRUG USAGE PROCESS [None]
